FAERS Safety Report 8485162-1 (Version None)
Quarter: 2012Q3

REPORT INFORMATION
  Report Type: 
  Country: None (occurrence: None)
  Receive Date: 20120703
  Receipt Date: 20120629
  Transmission Date: 20120928
  Serious: Yes (Hospitalization, Disabling, Other)
  Sender: FDA-Public Use
  Company Number: US-PFIZER INC-2012027903

PATIENT
  Sex: Male

DRUGS (1)
  1. CHANTIX [Suspect]
     Indication: SMOKING CESSATION THERAPY
     Dosage: UNK
     Dates: start: 20081001, end: 20081028

REACTIONS (7)
  - INTENTIONAL OVERDOSE [None]
  - SUICIDE ATTEMPT [None]
  - SUICIDAL IDEATION [None]
  - MOOD SWINGS [None]
  - ANXIETY [None]
  - DEPRESSION [None]
  - AGGRESSION [None]
